FAERS Safety Report 9931693 (Version 2)
Quarter: 2014Q1

REPORT INFORMATION
  Report Type: Report from Study
  Country: US (occurrence: US)
  Receive Date: 20140228
  Receipt Date: 20140305
  Transmission Date: 20141002
  Serious: Yes (Death, Other)
  Sender: FDA-Public Use
  Company Number: US-JNJFOC-20140212916

PATIENT
  Age: 86 Year
  Sex: Male

DRUGS (1)
  1. ZYTIGA [Suspect]
     Indication: NEOPLASM MALIGNANT
     Route: 048
     Dates: start: 20131218, end: 20131220

REACTIONS (5)
  - Blood urine present [Recovered/Resolved]
  - Malignant neoplasm progression [Fatal]
  - Nausea [Recovered/Resolved]
  - Hyperhidrosis [Unknown]
  - Hypokinesia [Unknown]
